FAERS Safety Report 5573298-4 (Version None)
Quarter: 2007Q4

REPORT INFORMATION
  Report Type: 
  Country: None (occurrence: None)
  Receive Date: 20071224
  Receipt Date: 20071219
  Transmission Date: 20080405
  Serious: Yes (Other)
  Sender: FDA-Public Use
  Company Number: PHEH2007US15918

PATIENT
  Sex: Female

DRUGS (4)
  1. DIOVAN [Suspect]
     Indication: HYPERTENSION
     Dosage: 320 MG, QD
     Dates: start: 20010101
  2. LOPRESSOR [Suspect]
     Indication: HYPERTENSION
     Dosage: 50 MG, BID
  3. NORVASC [Suspect]
     Indication: HYPERTENSION
     Dosage: 10 MG, QD
  4. LASIX [Suspect]
     Indication: HYPERTENSION
     Dosage: 40 MG, 2 TABS QD

REACTIONS (2)
  - ABDOMINAL HERNIA REPAIR [None]
  - HEART RATE DECREASED [None]
